FAERS Safety Report 13037810 (Version 1)
Quarter: 2016Q4

REPORT INFORMATION
  Report Type: Spontaneous
  Country: US (occurrence: US)
  Receive Date: 20161218
  Receipt Date: 20161218
  Transmission Date: 20170207
  Serious: No
  Sender: FDA-Public Use
  Company Number: US-PAR PHARMACEUTICAL, INC-2016SCPR015226

PATIENT

DRUGS (3)
  1. ROCEPHIN [Concomitant]
     Active Substance: CEFTRIAXONE SODIUM
     Indication: PRODUCT USED FOR UNKNOWN INDICATION
     Dosage: UNK, UNKNOWN
     Route: 042
     Dates: start: 20160223
  2. ZITHROMAX [Concomitant]
     Active Substance: AZITHROMYCIN DIHYDRATE
     Indication: HYPOKALAEMIA
     Dosage: UNK, UNKNOWN
     Route: 042
     Dates: start: 20160223
  3. APLISOL [Suspect]
     Active Substance: TUBERCULIN PURIFIED PROTEIN DERIVATIVE
     Indication: TUBERCULIN TEST
     Dosage: 1 ML, SINGLE
     Route: 023
     Dates: start: 20160224, end: 20160224

REACTIONS (2)
  - Incorrect dose administered [Unknown]
  - Injection site induration [Unknown]

NARRATIVE: CASE EVENT DATE: 2016
